FAERS Safety Report 15155888 (Version 1)
Quarter: 2018Q3

REPORT INFORMATION
  Report Type: Spontaneous
  Country: GB (occurrence: GB)
  Receive Date: 20180717
  Receipt Date: 20180717
  Transmission Date: 20181010
  Serious: Yes (Death, Hospitalization)
  Sender: FDA-Public Use
  Company Number: GB-US WORLDMEDS, LLC-STA_00020479

PATIENT
  Sex: Male

DRUGS (2)
  1. APOMORPHINE HYDROCHLORIDE [Suspect]
     Active Substance: APOMORPHINE HYDROCHLORIDE
     Indication: PARKINSON^S DISEASE
     Route: 058
     Dates: start: 200905, end: 201203
  2. RESAGALINE [Concomitant]
     Indication: PRODUCT USED FOR UNKNOWN INDICATION

REACTIONS (4)
  - Sepsis [Unknown]
  - Completed suicide [Fatal]
  - Nodule [Unknown]
  - Psychotic disorder [Unknown]
